FAERS Safety Report 16367807 (Version 1)
Quarter: 2019Q2

REPORT INFORMATION
  Report Type: Spontaneous
  Country: US (occurrence: US)
  Receive Date: 20190529
  Receipt Date: 20190529
  Transmission Date: 20190711
  Serious: No
  Sender: FDA-Public Use
  Company Number: US-BTG-201900014

PATIENT
  Age: 11 Year
  Sex: Male
  Weight: 55 kg

DRUGS (2)
  1. VORAXAZE [Suspect]
     Active Substance: GLUCARPIDASE
     Indication: TOXICITY TO VARIOUS AGENTS
     Dosage: 2600 UNITS
     Route: 042
     Dates: start: 20190110
  2. LEUCOVORIN. [Concomitant]
     Active Substance: LEUCOVORIN
     Indication: TOXICITY TO VARIOUS AGENTS
     Route: 065

REACTIONS (2)
  - Underdose [Unknown]
  - Laboratory test interference [Unknown]

NARRATIVE: CASE EVENT DATE: 20190111
